FAERS Safety Report 14188329 (Version 1)
Quarter: 2017Q4

REPORT INFORMATION
  Report Type: Spontaneous
  Country: US (occurrence: None)
  Receive Date: 20171114
  Receipt Date: 20171114
  Transmission Date: 20180321
  Serious: Yes (Other)
  Sender: FDA-Public Use
  Company Number: None

PATIENT
  Age: 65 Year
  Sex: Female
  Weight: 58.97 kg

DRUGS (1)
  1. AMITIZA [Suspect]
     Active Substance: LUBIPROSTONE
     Indication: CONSTIPATION
     Route: 048
     Dates: start: 20161111, end: 20170911

REACTIONS (1)
  - Hypoaesthesia [None]

NARRATIVE: CASE EVENT DATE: 20171101
